FAERS Safety Report 16992660 (Version 1)
Quarter: 2019Q4

REPORT INFORMATION
  Report Type: Spontaneous
  Country: US (occurrence: US)
  Receive Date: 20191105
  Receipt Date: 20191105
  Transmission Date: 20200122
  Serious: No
  Sender: FDA-Public Use
  Company Number: US-CIPLA LTD.-2019US05782

PATIENT

DRUGS (2)
  1. BUSPIRONE [Suspect]
     Active Substance: BUSPIRONE HYDROCHLORIDE
     Indication: PRODUCT USED FOR UNKNOWN INDICATION
     Dosage: 3.75 MILLIGRAM, CUT INTO HALF OF 7.5MG BUSPIRONE TABLETS A COUPLE OF WEEKS ONLY
     Route: 065
  2. GABAPENTIN. [Suspect]
     Active Substance: GABAPENTIN
     Indication: PRODUCT USED FOR UNKNOWN INDICATION
     Dosage: 300 MILLIGRAM, QD (ONCE IN THE EVENING, AT NIGHT)
     Route: 048
     Dates: start: 20190808

REACTIONS (2)
  - Dizziness [Unknown]
  - Feeling abnormal [Unknown]
